FAERS Safety Report 9288659 (Version 6)
Quarter: 2013Q3

REPORT INFORMATION
  Report Type: Report from Study
  Country: AU (occurrence: AU)
  Receive Date: 20130514
  Receipt Date: 20130710
  Transmission Date: 20140515
  Serious: Yes (Death, Hospitalization, Other)
  Sender: FDA-Public Use
  Company Number: PHHY2013AU047257

PATIENT
  Age: 77 Year
  Sex: Male

DRUGS (1)
  1. SANDOSTATIN LAR [Suspect]
     Indication: CARCINOID SYNDROME
     Dosage: 30 MG, UNK
     Route: 030
     Dates: end: 201306

REACTIONS (7)
  - Death [Fatal]
  - Depressed level of consciousness [Unknown]
  - Movement disorder [Unknown]
  - Retching [Unknown]
  - Vomiting [Unknown]
  - Lethargy [Unknown]
  - Malaise [Unknown]
